FAERS Safety Report 18029101 (Version 1)
Quarter: 2020Q3

REPORT INFORMATION
  Report Type: Spontaneous
  Country: IR (occurrence: IR)
  Receive Date: 20200715
  Receipt Date: 20200715
  Transmission Date: 20201103
  Serious: Yes (Congenital Anomaly, Other)
  Sender: FDA-Public Use
  Company Number: IR-GLAXOSMITHKLINE-IR2020GSK121934

PATIENT
  Sex: Male
  Weight: 3.35 kg

DRUGS (2)
  1. RANITIDINE. [Suspect]
     Active Substance: RANITIDINE
     Indication: GASTRITIS
     Dosage: UNK
     Route: 064
  2. ALUMINIUM HYDROXIDE + MAGNESIUM + SIMETHICONE [Suspect]
     Active Substance: ALUMINUM HYDROXIDE\DIMETHICONE\MAGNESIUM
     Indication: GASTRITIS
     Dosage: UNK
     Route: 064

REACTIONS (14)
  - Cyanosis neonatal [Unknown]
  - Strabismus [Unknown]
  - Trisomy 21 [Unknown]
  - Cardiac murmur [Unknown]
  - Pulmonary artery stenosis congenital [Unknown]
  - Ventricular septal defect [Unknown]
  - Foetal exposure during pregnancy [Unknown]
  - Hypotonia neonatal [Unknown]
  - Protrusion tongue [Unknown]
  - Cytogenetic abnormality [Unknown]
  - Congenital aortic valve incompetence [Unknown]
  - Abnormal palmar/plantar creases [Unknown]
  - Skin fissures [Unknown]
  - Atrial septal defect [Unknown]
